FAERS Safety Report 6263976-6 (Version None)
Quarter: 2009Q3

REPORT INFORMATION
  Report Type: 
  Country: None (occurrence: None)
  Receive Date: 20090708
  Receipt Date: 20090708
  Transmission Date: 20100115
  Serious: No
  Sender: FDA-Public Use
  Company Number: None

PATIENT
  Age: 63 Year
  Sex: Female
  Weight: 56.6996 kg

DRUGS (1)
  1. ZICAM ALLERGY RELIEF GEL TECH [Suspect]
     Indication: MULTIPLE ALLERGIES
     Dosage: 1 TWICE DAILY INHAL
     Route: 055
     Dates: start: 20040101, end: 20070101

REACTIONS (1)
  - ANOSMIA [None]
